FAERS Safety Report 14935358 (Version 1)
Quarter: 2018Q2

REPORT INFORMATION
  Report Type: Spontaneous
  Country: US (occurrence: US)
  Receive Date: 20180507
  Receipt Date: 20180507
  Transmission Date: 20180711
  Serious: Yes (Life-Threatening)
  Sender: FDA-Public Use
  Company Number: None

PATIENT
  Age: 74 Year
  Sex: Male
  Weight: 76.5 kg

DRUGS (31)
  1. HEPARIN [Concomitant]
     Active Substance: HEPARIN SODIUM
  2. LISPRO [Concomitant]
     Active Substance: INSULIN LISPRO
  3. METHYLPREDNISOLONE. [Concomitant]
     Active Substance: METHYLPREDNISOLONE
  4. ADENOSINE. [Concomitant]
     Active Substance: ADENOSINE
  5. POLYETHYLENE [Concomitant]
     Active Substance: HIGH DENSITY POLYETHYLENE
  6. GABAPENTIN. [Concomitant]
     Active Substance: GABAPENTIN
  7. INSULIN GLARGINE [Concomitant]
     Active Substance: INSULIN GLARGINE
  8. NEURONTIN [Concomitant]
     Active Substance: GABAPENTIN
  9. VENOLIN HFA, PROAIR HFA [Concomitant]
  10. DOXYCYCLINE. [Concomitant]
     Active Substance: DOXYCYCLINE
  11. MAGNESIUM [Concomitant]
     Active Substance: MAGNESIUM
  12. ERTHROMYCIN [Concomitant]
  13. FOLIC ACID. [Concomitant]
     Active Substance: FOLIC ACID
  14. ACETAMINOPHEN. [Concomitant]
     Active Substance: ACETAMINOPHEN
  15. ZOLPIDEM [Concomitant]
     Active Substance: ZOLPIDEM\ZOLPIDEM TARTRATE
  16. DOPAMINE [Concomitant]
     Active Substance: DOPAMINE\DOPAMINE HYDROCHLORIDE
  17. NOREPINEPHRINE. [Concomitant]
     Active Substance: NOREPINEPHRINE
  18. SODIUM CHLORIDE. [Concomitant]
     Active Substance: SODIUM CHLORIDE
  19. TECENTRIQ [Suspect]
     Active Substance: ATEZOLIZUMAB
     Indication: NEOPLASM MALIGNANT
     Dosage: OTHER STRENGTH:120 UNITS;QUANTITY:1 INJECTION(S);OTHER FREQUENCY:FIRST TIME;OTHER ROUTE:PORT THAT WAS INPLANTED IN THE CHEST?
     Dates: start: 20180410, end: 20180410
  20. DEXTROSE. [Concomitant]
     Active Substance: DEXTROSE
  21. FENTANYL. [Concomitant]
     Active Substance: FENTANYL
  22. POT CHLORIDE [Concomitant]
     Active Substance: POTASSIUM CHLORIDE
  23. METOCLOPRAMIDE. [Concomitant]
     Active Substance: METOCLOPRAMIDE
  24. FOLVIT [Concomitant]
  25. AMBIEN [Concomitant]
     Active Substance: ZOLPIDEM TARTRATE
  26. DEXMEDETOMIDINE. [Concomitant]
     Active Substance: DEXMEDETOMIDINE
  27. PIPERACILLIN [Concomitant]
     Active Substance: PIPERACILLIN
  28. ALBUTEROL. [Concomitant]
     Active Substance: ALBUTEROL
  29. DILTIAZEM. [Concomitant]
     Active Substance: DILTIAZEM
  30. FAMOTIDINE. [Concomitant]
     Active Substance: FAMOTIDINE
  31. ONDANSETRON [Concomitant]
     Active Substance: ONDANSETRON

REACTIONS (17)
  - Hypertension [None]
  - Urine output decreased [None]
  - Pneumonia [None]
  - Cough [None]
  - Decreased appetite [None]
  - Fatigue [None]
  - Dialysis [None]
  - Pyrexia [None]
  - Heart rate irregular [None]
  - Pleural effusion [None]
  - Abdominal discomfort [None]
  - Blood test abnormal [None]
  - Rash [None]
  - Swelling [None]
  - Diarrhoea [None]
  - Renal failure [None]
  - Pneumopericardium [None]

NARRATIVE: CASE EVENT DATE: 20180410
